FAERS Safety Report 9506021 (Version 1)
Quarter: 2013Q1

REPORT INFORMATION
  Report Type: Spontaneous
  Country: US (occurrence: None)
  Receive Date: 20130201
  Receipt Date: 20130201
  Transmission Date: 20140127
  Serious: No
  Sender: FDA-Public Use
  Company Number: US-010294

PATIENT
  Age: 61 Year
  Sex: Female
  Weight: 67.13 kg

DRUGS (4)
  1. PICOLAX /00362801/ (NOT SPECIFIED) [Suspect]
     Indication: BOWEL PREPARATION
     Dosage: 1 PACKET MIXED IN 5OZ WATER
     Dates: start: 20121204
  2. PRISTIQ [Concomitant]
  3. LEVOTHYROXINE [Concomitant]
  4. REQUIP [Concomitant]

REACTIONS (1)
  - Drug ineffective [None]
